FAERS Safety Report 5688109-6 (Version None)
Quarter: 2008Q1

REPORT INFORMATION
  Report Type: 
  Country: None (occurrence: None)
  Receive Date: 20080327
  Receipt Date: 20080314
  Transmission Date: 20080703
  Serious: Yes (Other)
  Sender: FDA-Public Use
  Company Number: SPV1-2008-00596

PATIENT
  Sex: Female
  Weight: 37.2 kg

DRUGS (5)
  1. ADDERALL XR [Suspect]
     Indication: ATTENTION DEFICIT/HYPERACTIVITY DISORDER
     Dosage: 1X/DAY;QD, ORAL
     Route: 048
  2. OMEGA 3 (FISH OIL) [Concomitant]
  3. MELATONIN (MELATONIN) [Concomitant]
  4. PROPRANOLOL [Concomitant]
  5. B12 (CUANOCOBALAMIN-TANNIN COMPLEX) [Concomitant]

REACTIONS (2)
  - ANOREXIA [None]
  - SUICIDAL IDEATION [None]
